FAERS Safety Report 7215538-1 (Version None)
Quarter: 2011Q1

REPORT INFORMATION
  Report Type: 
  Country: None (occurrence: None)
  Receive Date: 20110107
  Receipt Date: 20101230
  Transmission Date: 20110831
  Serious: Yes (Death)
  Sender: FDA-Public Use
  Company Number: US-EISAI INC.-E7389-01117-SPO-US

PATIENT
  Sex: Female

DRUGS (1)
  1. HALAVEN [Suspect]
     Route: 041
     Dates: start: 20101217

REACTIONS (2)
  - DEATH [None]
  - FATIGUE [None]
